FAERS Safety Report 12644291 (Version 4)
Quarter: 2016Q4

REPORT INFORMATION
  Report Type: Spontaneous
  Country: IT (occurrence: IT)
  Receive Date: 20160811
  Receipt Date: 20161012
  Transmission Date: 20170207
  Serious: Yes (Hospitalization)
  Sender: FDA-Public Use
  Company Number: IT-B.I. PHARMACEUTICALS,INC./RIDGEFIELD-2016-BI-51755IT

PATIENT
  Age: 73 Year
  Sex: Male

DRUGS (3)
  1. CARDIOASPIRIN [Suspect]
     Active Substance: ASPIRIN
     Route: 065
  2. PRADAXA [Suspect]
     Active Substance: DABIGATRAN ETEXILATE MESYLATE
     Indication: PRODUCT USED FOR UNKNOWN INDICATION
     Route: 065
  3. CARDIOASPIRIN [Suspect]
     Active Substance: ASPIRIN
     Indication: PRODUCT USED FOR UNKNOWN INDICATION
     Route: 048

REACTIONS (5)
  - Drug prescribing error [Unknown]
  - Lividity [Unknown]
  - Fluid retention [Unknown]
  - Chest discomfort [Unknown]
  - Labelled drug-drug interaction medication error [Unknown]
